FAERS Safety Report 14093629 (Version 2)
Quarter: 2017Q4

REPORT INFORMATION
  Report Type: Spontaneous
  Country: US (occurrence: US)
  Receive Date: 20171016
  Receipt Date: 20171113
  Transmission Date: 20180321
  Serious: Yes (Other)
  Sender: FDA-Public Use
  Company Number: US-ELI_LILLY_AND_COMPANY-US201710005279

PATIENT
  Age: 50 Year
  Sex: Female

DRUGS (2)
  1. AMBRISENTAN [Suspect]
     Active Substance: AMBRISENTAN
     Indication: PRODUCT USED FOR UNKNOWN INDICATION
     Dosage: 10 MG, DAILY
     Route: 065
     Dates: start: 20160922
  2. ADCIRCA [Suspect]
     Active Substance: TADALAFIL
     Indication: PRODUCT USED FOR UNKNOWN INDICATION
     Dosage: UNK UNK, UNKNOWN
     Route: 065

REACTIONS (9)
  - Presyncope [Unknown]
  - Constipation [Recovered/Resolved]
  - Haemorrhage [Recovered/Resolved]
  - Eye disorder [Unknown]
  - Diarrhoea [Unknown]
  - Dyspnoea exertional [Not Recovered/Not Resolved]
  - Stress [Not Recovered/Not Resolved]
  - Fluid retention [Unknown]
  - Chest pain [Unknown]

NARRATIVE: CASE EVENT DATE: 20170923
